FAERS Safety Report 7774748-5 (Version None)
Quarter: 2011Q3

REPORT INFORMATION
  Report Type: 
  Country: None (occurrence: None)
  Receive Date: 20110923
  Receipt Date: 20110914
  Transmission Date: 20111222
  Serious: Yes (Other)
  Sender: FDA-Public Use
  Company Number: DE-UCBSA-038296

PATIENT
  Sex: Female
  Weight: 55 kg

DRUGS (1)
  1. METHYLPHENIDATE HCL [Suspect]
     Indication: DISTURBANCE IN ATTENTION
     Dosage: 0.36 MG/KG PER DAY
     Route: 048

REACTIONS (1)
  - LUPUS-LIKE SYNDROME [None]
